FAERS Safety Report 21709193 (Version 4)
Quarter: 2023Q2

REPORT INFORMATION
  Report Type: Report from Study
  Country: CN (occurrence: CN)
  Receive Date: 20221210
  Receipt Date: 20230407
  Transmission Date: 20230721
  Serious: Yes (Hospitalization)
  Sender: FDA-Public Use
  Company Number: CN-002147023-NVSC2022CN282487

PATIENT
  Age: 25 Year
  Sex: Male
  Weight: 75.5 kg

DRUGS (7)
  1. COSENTYX [Suspect]
     Active Substance: SECUKINUMAB
     Indication: Psoriasis
     Dosage: 300 MG
     Route: 065
     Dates: start: 20220225, end: 20220919
  2. COSENTYX [Suspect]
     Active Substance: SECUKINUMAB
     Dosage: UNK
     Route: 065
  3. COSENTYX [Suspect]
     Active Substance: SECUKINUMAB
     Dosage: UNK (EVERY FOUR WEEKS IRREGULAR TIMES)
     Route: 065
  4. CEFUROXIME AXETIL [Concomitant]
     Active Substance: CEFUROXIME AXETIL
     Indication: Lymphadenitis
     Dosage: 1 DOSAGE FORM, BID (SLICE)
     Route: 048
     Dates: start: 20221115, end: 20221121
  5. DICLOFENAC SODIUM [Concomitant]
     Active Substance: DICLOFENAC SODIUM
     Indication: Lymphadenitis
     Dosage: 1 DOSAGE FORM, TID
     Route: 048
     Dates: start: 20221115, end: 20221118
  6. TACROLIMUS [Concomitant]
     Active Substance: TACROLIMUS
     Indication: Psoriasis
     Dosage: 0.1 G, BID (EXTERNAL USE) (EACH TIME)
     Route: 065
     Dates: start: 20220909, end: 202210
  7. MOMETASONE FUROATE [Concomitant]
     Active Substance: MOMETASONE FUROATE
     Indication: Psoriasis
     Dosage: 0.2 G, QD (EXTERNAL USE)
     Route: 065
     Dates: start: 20220919, end: 202210

REACTIONS (2)
  - Lipoma [Recovered/Resolved]
  - Inappropriate schedule of product administration [Unknown]

NARRATIVE: CASE EVENT DATE: 20221022
